FAERS Safety Report 7717144-9 (Version None)
Quarter: 2011Q3

REPORT INFORMATION
  Report Type: 
  Country: None (occurrence: None)
  Receive Date: 20110826
  Receipt Date: 20110826
  Transmission Date: 20111222
  Serious: Yes (Death)
  Sender: FDA-Public Use
  Company Number: None

PATIENT
  Sex: Male

DRUGS (1)
  1. PULMOZYME [Suspect]
     Dosage: 2.5 MG BID INH
     Route: 055
     Dates: start: 20110101, end: 20110801

REACTIONS (1)
  - DEATH [None]
